FAERS Safety Report 4589985-0 (Version None)
Quarter: 2005Q1

REPORT INFORMATION
  Report Type: 
  Country: None (occurrence: None)
  Receive Date: 20050125
  Receipt Date: 20040908
  Transmission Date: 20050727
  Serious: No
  Sender: FDA-Public Use
  Company Number: USA040772458

PATIENT
  Age: 80 Year
  Sex: Female

DRUGS (7)
  1. FORTEO [Suspect]
     Indication: OSTEOPOROSIS
     Dates: start: 20040704
  2. ACIPHEX [Concomitant]
  3. MULTIVITAMIN [Concomitant]
  4. METAMUCIL (PSYLILUM HYDROPHILIC MUCILLOID) [Concomitant]
  5. CALCIUM CITRATE [Concomitant]
  6. MIACALCIN [Concomitant]
  7. FOSAMAX [Concomitant]

REACTIONS (1)
  - MACULAR DEGENERATION [None]
